FAERS Safety Report 4949881-3 (Version None)
Quarter: 2006Q1

REPORT INFORMATION
  Report Type: 
  Country: None (occurrence: None)
  Receive Date: 20060315
  Receipt Date: 20060310
  Transmission Date: 20060701
  Serious: Yes (Hospitalization)
  Sender: FDA-Public Use
  Company Number: S06-SWI-00055-01

PATIENT
  Age: 65 Year
  Sex: Female

DRUGS (19)
  1. CITALOPRAM HYDROBROMIDE [Suspect]
     Dosage: 20 MG QD; PO
     Route: 048
     Dates: start: 20050811, end: 20050906
  2. CYTOSAR-U [Suspect]
     Indication: ACUTE MYELOID LEUKAEMIA
     Dosage: 350 MG QD; IV
     Route: 042
     Dates: start: 20050810, end: 20050816
  3. MAXIPIME [Suspect]
     Dosage: 3000 MG QD; IV
     Route: 042
     Dates: start: 20050806, end: 20050808
  4. TAZORAC [Suspect]
     Dosage: 4500 MG TID; IV
     Route: 042
     Dates: start: 20050809, end: 20050811
  5. MERONEM (MEROPENEM) [Suspect]
     Dosage: 1000 MG TID; IV
     Route: 042
     Dates: start: 20050811, end: 20050824
  6. FUNGIZONE [Suspect]
     Dosage: 70 MG QD; IV
     Route: 042
     Dates: start: 20050829, end: 20050906
  7. TIATRAL (ALOXIPRIN) [Concomitant]
  8. METFORMIN [Concomitant]
  9. SIMVASTATIN [Concomitant]
  10. PADMA [Concomitant]
  11. INSULIN [Concomitant]
  12. ALLOPURINOL [Concomitant]
  13. CERUBIDINE ^BEDFORD^ (DAUNORUBICIN HYDROCHLORIDE) [Concomitant]
  14. AMIKIN (AMIDACIN SULFATE) [Concomitant]
  15. VALTREX [Concomitant]
  16. FLAGYL [Concomitant]
  17. KONAKION [Concomitant]
  18. KALIUM (POTASSIUM CHLORIDE) [Concomitant]
  19. URSO FALK [Concomitant]

REACTIONS (11)
  - ALANINE AMINOTRANSFERASE INCREASED [None]
  - ASPARTATE AMINOTRANSFERASE INCREASED [None]
  - BLOOD ALKALINE PHOSPHATASE INCREASED [None]
  - CHOLESTASIS [None]
  - CONDITION AGGRAVATED [None]
  - GAMMA-GLUTAMYLTRANSFERASE INCREASED [None]
  - HEPATOCELLULAR DAMAGE [None]
  - HYPERBILIRUBINAEMIA [None]
  - INTERNATIONAL NORMALISED RATIO INCREASED [None]
  - PROTHROMBIN TIME PROLONGED [None]
  - SEPSIS [None]
